FAERS Safety Report 13876114 (Version 1)
Quarter: 2017Q3

REPORT INFORMATION
  Report Type: Spontaneous
  Country: US (occurrence: None)
  Receive Date: 20170814
  Receipt Date: 20170814
  Transmission Date: 20171127
  Serious: No
  Sender: FDA-Public Use
  Company Number: None

PATIENT
  Age: 70 Year
  Sex: Female
  Weight: 22.68 kg

DRUGS (1)
  1. ENBREL [Suspect]
     Active Substance: ETANERCEPT
     Indication: RHEUMATOID ARTHRITIS
     Dosage: INJECT ONE SURECLICK PEN ONCE A WEEK
     Route: 058
     Dates: start: 20170714

REACTIONS (4)
  - Skin disorder [None]
  - Urticaria [None]
  - Pain [None]
  - Pruritus [None]

NARRATIVE: CASE EVENT DATE: 20170714
